FAERS Safety Report 25712590 (Version 2)
Quarter: 2025Q3

REPORT INFORMATION
  Report Type: Spontaneous
  Country: JP (occurrence: JP)
  Receive Date: 20250821
  Receipt Date: 20250902
  Transmission Date: 20251020
  Serious: Yes (Other)
  Sender: PFIZER
  Company Number: JP-PFIZER INC-PV202500100192

PATIENT
  Age: 37 Year
  Sex: Female

DRUGS (2)
  1. COAGULATION FACTOR IX RECOMBINANT HUMAN [Suspect]
     Active Substance: COAGULATION FACTOR IX RECOMBINANT HUMAN
  2. COAGULATION FACTOR IX RECOMBINANT HUMAN [Suspect]
     Active Substance: COAGULATION FACTOR IX RECOMBINANT HUMAN

REACTIONS (4)
  - Genital haemorrhage [Unknown]
  - Subchorionic haematoma [Unknown]
  - Coagulation factor IX level decreased [Unknown]
  - Maternal exposure during pregnancy [Unknown]
